FAERS Safety Report 7076815-0 (Version None)
Quarter: 2010Q4

REPORT INFORMATION
  Report Type: 
  Country: None (occurrence: None)
  Receive Date: 20101101
  Receipt Date: 20101026
  Transmission Date: 20110411
  Serious: Yes (Death, Other)
  Sender: FDA-Public Use
  Company Number: DE-BAXTER-2010BH026713

PATIENT
  Sex: Male

DRUGS (8)
  1. CYCLOPHOSPHAMIDE [Suspect]
     Indication: HODGKIN'S DISEASE
     Route: 042
  2. ADRIAMYCIN PFS [Suspect]
     Indication: HODGKIN'S DISEASE
     Route: 042
  3. PROCARBAZINE [Suspect]
     Indication: HODGKIN'S DISEASE
     Route: 048
  4. PREDNISONE [Suspect]
     Indication: HODGKIN'S DISEASE
     Route: 048
  5. PREDNISONE [Suspect]
     Route: 048
  6. BLEOMYCIN SULFATE [Suspect]
     Indication: HODGKIN'S DISEASE
     Route: 042
  7. VINCRISTINE [Suspect]
     Indication: HODGKIN'S DISEASE
     Route: 042
  8. VINCRISTINE [Suspect]
     Route: 042

REACTIONS (2)
  - DRUG TOXICITY [None]
  - INFECTION [None]
